FAERS Safety Report 8288279-X (Version None)
Quarter: 2012Q2

REPORT INFORMATION
  Report Type: 
  Country: None (occurrence: None)
  Receive Date: 20120416
  Receipt Date: 20120410
  Transmission Date: 20120825
  Serious: Yes (Hospitalization, Other)
  Sender: FDA-Public Use
  Company Number: PHEH2012US002179

PATIENT
  Sex: Male

DRUGS (4)
  1. CLOZARIL [Suspect]
     Dosage: 100 MG 7 A DAY
     Route: 065
  2. PERPHENAZINE [Suspect]
     Indication: SCHIZOPHRENIA
     Dosage: 8 MG 3XDAY
  3. CLOZARIL [Suspect]
     Dosage: UNK UKN, UNK
  4. CLOZAPINE [Suspect]
     Dosage: UNK UKN, UNK

REACTIONS (10)
  - VOMITING [None]
  - CONVULSION [None]
  - FATIGUE [None]
  - DECREASED APPETITE [None]
  - EXTRASYSTOLES [None]
  - HYPERHIDROSIS [None]
  - APPENDICITIS PERFORATED [None]
  - INTESTINAL PERFORATION [None]
  - INTENTIONAL SELF-INJURY [None]
  - CATATONIA [None]
